FAERS Safety Report 13661709 (Version 2)
Quarter: 2018Q1

REPORT INFORMATION
  Report Type: Report from Study
  Country: AU (occurrence: AU)
  Receive Date: 20170616
  Receipt Date: 20180221
  Transmission Date: 20180508
  Serious: Yes (Hospitalization)
  Sender: FDA-Public Use
  Company Number: AU-TOLMAR, INC.-2017AU007705

PATIENT

DRUGS (1)
  1. ELIGARD [Suspect]
     Active Substance: LEUPROLIDE ACETATE
     Indication: PROSTATE CANCER
     Dosage: 30 MG, EVERY FOUR MONTHS
     Route: 065
     Dates: start: 20161021

REACTIONS (10)
  - Stent placement [Unknown]
  - Weight increased [Unknown]
  - Fatigue [Unknown]
  - Testicular atrophy [Unknown]
  - Back pain [Unknown]
  - Nocturia [Unknown]
  - Arthropathy [Unknown]
  - Nausea [Unknown]
  - Chills [Not Recovered/Not Resolved]
  - Hot flush [Not Recovered/Not Resolved]

NARRATIVE: CASE EVENT DATE: 20170517
